FAERS Safety Report 19954940 (Version 1)
Quarter: 2021Q4

REPORT INFORMATION
  Report Type: Spontaneous
  Country: US (occurrence: US)
  Receive Date: 20211014
  Receipt Date: 20211014
  Transmission Date: 20220304
  Serious: Yes (Other)
  Sender: FDA-Public Use
  Company Number: 2021A763070

PATIENT
  Age: 21 Year
  Sex: Female

DRUGS (1)
  1. LYNPARZA [Suspect]
     Active Substance: OLAPARIB
     Dosage: UNKNOWN UNKNOWN
     Route: 048

REACTIONS (3)
  - Carbohydrate antigen 125 increased [Unknown]
  - Drug ineffective [Unknown]
  - Nodule [Unknown]
